FAERS Safety Report 10883106 (Version 2)
Quarter: 2015Q2

REPORT INFORMATION
  Report Type: Spontaneous
  Country: JP (occurrence: JP)
  Receive Date: 20150303
  Receipt Date: 20150623
  Transmission Date: 20150821
  Serious: Yes (Other)
  Sender: FDA-Public Use
  Company Number: JP-GLAXOSMITHKLINE INC.-JP2015JPN025553

PATIENT
  Age: 79 Year
  Sex: Female
  Weight: 42 kg

DRUGS (10)
  1. HALFDIGOXIN [Concomitant]
     Active Substance: DIGOXIN
     Dosage: UNK
  2. NORVASC [Concomitant]
     Active Substance: AMLODIPINE BESYLATE
     Dosage: UNK
  3. WARFARIN [Concomitant]
     Active Substance: WARFARIN
     Dosage: UNK
  4. WARFARIN POTASSIUM [Concomitant]
     Active Substance: WARFARIN POTASSIUM
     Dosage: UNK
  5. ECARD [Concomitant]
     Active Substance: CANDESARTAN CILEXETIL\HYDROCHLOROTHIAZIDE
     Dosage: UNK
  6. ARTIST [Concomitant]
     Active Substance: CARVEDILOL
     Dosage: UNK
  7. RELENZA [Suspect]
     Active Substance: ZANAMIVIR
     Indication: ANTIVIRAL PROPHYLAXIS
     Dosage: 10 MG, QD
     Route: 055
     Dates: start: 20150111, end: 20150114
  8. LEXOTAN [Concomitant]
     Active Substance: BROMAZEPAM
     Dosage: UNK
  9. ZYLORIC [Concomitant]
     Active Substance: ALLOPURINOL
     Dosage: UNK
  10. ZETIA [Concomitant]
     Active Substance: EZETIMIBE
     Dosage: UNK

REACTIONS (1)
  - White blood cell count decreased [Recovered/Resolved]

NARRATIVE: CASE EVENT DATE: 20150115
